FAERS Safety Report 9008062 (Version 3)
Quarter: 2013Q1

REPORT INFORMATION
  Report Type: Spontaneous
  Country: US (occurrence: US)
  Receive Date: 20130111
  Receipt Date: 20130131
  Transmission Date: 20140127
  Serious: No
  Sender: FDA-Public Use
  Company Number: US-PFIZER INC-2013006851

PATIENT
  Sex: 0

DRUGS (1)
  1. GLUCOTROL [Suspect]
     Dosage: UNK

REACTIONS (2)
  - Nasopharyngitis [Unknown]
  - Influenza [Unknown]
